FAERS Safety Report 15338723 (Version 1)
Quarter: 2018Q3

REPORT INFORMATION
  Report Type: Spontaneous
  Country: US (occurrence: US)
  Receive Date: 20180827
  Receipt Date: 20180827
  Transmission Date: 20181010
  Serious: No
  Sender: FDA-Public Use
  Company Number: None

PATIENT
  Age: 50 Year
  Sex: Female

DRUGS (1)
  1. ENBREL [Suspect]
     Active Substance: ETANERCEPT
     Indication: RHEUMATOID ARTHRITIS

REACTIONS (5)
  - Drug dose omission [None]
  - Symptom recurrence [None]
  - Menstruation irregular [None]
  - Insurance issue [None]
  - Rheumatoid arthritis [None]

NARRATIVE: CASE EVENT DATE: 20180814
